FAERS Safety Report 6443916-7 (Version None)
Quarter: 2009Q4

REPORT INFORMATION
  Report Type: 
  Country: None (occurrence: None)
  Receive Date: 20091113
  Receipt Date: 20091030
  Transmission Date: 20100525
  Serious: Yes (Life-Threatening, Hospitalization)
  Sender: FDA-Public Use
  Company Number: 1000008911

PATIENT
  Age: 80 Year
  Sex: Female

DRUGS (7)
  1. LEXAPRO [Suspect]
     Indication: DEPRESSION
     Dosage: 5 MG (5 MG,1 IN 1 D),ORAL
     Route: 048
     Dates: start: 20090528, end: 20090529
  2. INSULATARD [Concomitant]
  3. ACETYLSALICYLIC ACID [Concomitant]
  4. EMCONCOR [Concomitant]
  5. ACTRAPID [Concomitant]
  6. PLAVIX [Concomitant]
  7. ZOCOR [Concomitant]

REACTIONS (3)
  - COMA [None]
  - GRAND MAL CONVULSION [None]
  - SOMNOLENCE [None]
